FAERS Safety Report 6550839-1 (Version None)
Quarter: 2010Q1

REPORT INFORMATION
  Report Type: 
  Country: None (occurrence: None)
  Receive Date: 20100121
  Receipt Date: 20100106
  Transmission Date: 20100710
  Serious: Yes (Other)
  Sender: FDA-Public Use
  Company Number: AMAG201000007

PATIENT
  Age: 32 Year
  Sex: Male
  Weight: 142.4 kg

DRUGS (4)
  1. FERAHEME [Suspect]
     Indication: IRON DEFICIENCY ANAEMIA
     Dosage: 510 MG, SINGLE, INTRAVENOUS
     Route: 042
     Dates: start: 20100106, end: 20100106
  2. LEXAPRO (ESCITALOPRAMC OXALATE) [Concomitant]
  3. METOPROLOL TARTRATE [Concomitant]
  4. MICARDIS HCT [Concomitant]

REACTIONS (17)
  - BACK PAIN [None]
  - BLOOD CREATINE INCREASED [None]
  - BLOOD CREATINE PHOSPHOKINASE INCREASED [None]
  - BLOOD GLUCOSE INCREASED [None]
  - BLOOD UREA INCREASED [None]
  - DREAMY STATE [None]
  - FEELING ABNORMAL [None]
  - HYPOTENSION [None]
  - NAUSEA [None]
  - PALLOR [None]
  - PARAESTHESIA [None]
  - PULSE ABNORMAL [None]
  - RETCHING [None]
  - SYNCOPE [None]
  - TONGUE BITING [None]
  - UNRESPONSIVE TO STIMULI [None]
  - WEIGHT DECREASED [None]
